FAERS Safety Report 22385962 (Version 1)
Quarter: 2023Q2

REPORT INFORMATION
  Report Type: Spontaneous
  Country: CZ (occurrence: CZ)
  Receive Date: 20230530
  Receipt Date: 20230530
  Transmission Date: 20230721
  Serious: Yes (Death, Hospitalization, Other)
  Sender: FDA-Public Use
  Company Number: CZ-BRISTOL-MYERS SQUIBB COMPANY-2023-065858

PATIENT
  Age: 61 Year
  Sex: Female
  Weight: 48 kg

DRUGS (21)
  1. CARBOPLATIN [Suspect]
     Active Substance: CARBOPLATIN
     Indication: Lung adenocarcinoma
     Dosage: CYCLE 1 IN COMBINATION WITH NIVOLUMAB, IPILIMUMAB AND PEMETREXED
     Dates: start: 20220315
  2. CARBOPLATIN [Suspect]
     Active Substance: CARBOPLATIN
     Dosage: CYCLE 2 IN COMBINATION WITH NIVOLUMAB, PEGFILGRASTIM AND PEMETREXED
     Dates: start: 20220405
  3. PEMETREXED [Suspect]
     Active Substance: PEMETREXED
     Indication: Lung adenocarcinoma
     Dosage: CYCLE 2 IN COMBINATION WITH NIVOLUMAB, PEGFILGRASTIM AND CARBOPLATIN
     Route: 065
  4. PEMETREXED [Suspect]
     Active Substance: PEMETREXED
     Dosage: CYCLE 1 IN COMBINATION WITH NIVOLUMAB, IPILIMUMAB AND CARBOPLATIN
     Route: 065
     Dates: start: 20220315
  5. IPILIMUMAB [Suspect]
     Active Substance: IPILIMUMAB
     Indication: Lung adenocarcinoma
     Dosage: CYCLE 1 IN COMBINATION WITH NIVOLUMAB, CARBOPLATIN AND PEMETREXED
     Dates: start: 20210315
  6. IPILIMUMAB [Suspect]
     Active Substance: IPILIMUMAB
     Dosage: CYCLE 3 IN COMBINATION WITH NIVOLUMAB
     Dates: start: 20220426
  7. IPILIMUMAB [Suspect]
     Active Substance: IPILIMUMAB
     Dosage: CYCLE 7 IN COMBINATION WITH NIVOLUMAB
     Dates: start: 20220823
  8. IPILIMUMAB [Suspect]
     Active Substance: IPILIMUMAB
     Dosage: CYCLE 9 IN COMBINATION WITH NIVOLUMAB
     Dates: start: 20221004
  9. IPILIMUMAB [Suspect]
     Active Substance: IPILIMUMAB
     Dosage: CYCLE 5 IN COMBINATION WITH NIVOLUMAB
     Dates: start: 20220712
  10. NALOXONE HYDROCHLORIDE\OXYCODONE HYDROCHLORIDE [Suspect]
     Active Substance: NALOXONE HYDROCHLORIDE\OXYCODONE HYDROCHLORIDE
     Indication: Arthralgia
  11. NIVOLUMAB [Suspect]
     Active Substance: NIVOLUMAB
     Indication: Lung adenocarcinoma
     Dosage: CYCLE 10 MONOTHERAPY
  12. NIVOLUMAB [Suspect]
     Active Substance: NIVOLUMAB
     Dosage: CYCLE 8 MONOTHERAPY
     Dates: start: 20220913
  13. NIVOLUMAB [Suspect]
     Active Substance: NIVOLUMAB
     Dosage: CYCLE 1 IN COMBINATION WITH IPILIMUMAB, CARBOPATIN AND PEMETREXED
     Dates: start: 20220315
  14. NIVOLUMAB [Suspect]
     Active Substance: NIVOLUMAB
     Dosage: CYCLE 9 IN COMBINATION WITH IPILIMUMAB
     Dates: start: 20221004
  15. NIVOLUMAB [Suspect]
     Active Substance: NIVOLUMAB
     Dosage: CYCLE 5 IN COMBINATION WITH IPILIMUMAB
     Dates: start: 20220712
  16. NIVOLUMAB [Suspect]
     Active Substance: NIVOLUMAB
     Dosage: CYCLE 4 MONOTHERAPY
     Dates: start: 20220517
  17. NIVOLUMAB [Suspect]
     Active Substance: NIVOLUMAB
     Dosage: CYCLE 6 MONOTHERAPY
     Dates: start: 20220802
  18. NIVOLUMAB [Suspect]
     Active Substance: NIVOLUMAB
     Dosage: CYCLE 7 IN COMBINATION WITH IPILIMUMAB
     Dates: start: 20220823
  19. NIVOLUMAB [Suspect]
     Active Substance: NIVOLUMAB
     Dosage: CYCLE 3 IN COMBINATION WITH IPILIMUMAB
     Dates: start: 20220426
  20. NIVOLUMAB [Suspect]
     Active Substance: NIVOLUMAB
     Dosage: CYCLE 2 IN COMBINATION WITH PEGFILGRASTIM, CARBOPLATIN AND PEMETREXED
     Dates: start: 20220405
  21. PEGFILGRASTIM [Concomitant]
     Active Substance: PEGFILGRASTIM
     Indication: Lung adenocarcinoma
     Route: 065

REACTIONS (31)
  - Sudden death [Fatal]
  - Blood corticotrophin decreased [None]
  - Fluid intake reduced [None]
  - Vertigo [None]
  - Hypophagia [None]
  - Hydrothorax [None]
  - Delusion [None]
  - Hallucination [None]
  - Paraparesis [None]
  - Lymphangiosis carcinomatosa [None]
  - Arthralgia [None]
  - Neutropenia [None]
  - Vomiting [None]
  - Nausea [None]
  - Asthenia [None]
  - Pneumonia [None]
  - Pelvic abscess [None]
  - Malignant neoplasm progression [None]
  - General physical health deterioration [None]
  - Condition aggravated [None]
  - Chest pain [None]
  - Somnolence [None]
  - Communication disorder [None]
  - Confusional state [None]
  - Radiation associated pain [None]
  - Klebsiella test positive [None]
  - Staring [None]
  - Decreased appetite [None]
  - Diarrhoea [None]
  - Anaemia [None]
  - Pyrexia [None]

NARRATIVE: CASE EVENT DATE: 20220315
